FAERS Safety Report 7132950-X (Version None)
Quarter: 2010Q4

REPORT INFORMATION
  Report Type: 
  Country: None (occurrence: None)
  Receive Date: 20101202
  Receipt Date: 20101122
  Transmission Date: 20110411
  Serious: Yes (Other)
  Sender: FDA-Public Use
  Company Number: GB-PFIZER INC-GB-WYE-G06569310

PATIENT
  Age: 43 Year
  Sex: Male
  Weight: 62.8 kg

DRUGS (9)
  1. REFACTO [Suspect]
     Dosage: 3000 IU, UNK
     Route: 042
     Dates: start: 20100811
  2. REFACTO [Suspect]
     Dosage: 3000 IU, UNK
     Route: 042
     Dates: start: 20100811
  3. ABACAVIR SULFATE/LAMIVUDINE [Concomitant]
     Dosage: UNK
     Route: 048
     Dates: start: 20080101
  4. ETODOLAC [Concomitant]
     Dosage: UNK
     Route: 048
     Dates: start: 20090101
  5. KALETRA [Concomitant]
     Dosage: UNK
     Route: 048
     Dates: start: 20060101
  6. LISINOPRIL [Concomitant]
     Dosage: UNK
     Route: 048
     Dates: start: 20080101
  7. MICONAZOLE [Concomitant]
     Route: 048
  8. IODINE [Concomitant]
  9. ADVATE [Concomitant]

REACTIONS (2)
  - DRUG INEFFECTIVE [None]
  - HAEMATOLOGY TEST ABNORMAL [None]
